FAERS Safety Report 11138452 (Version 1)
Quarter: 2015Q2

REPORT INFORMATION
  Report Type: Spontaneous
  Country: US (occurrence: US)
  Receive Date: 20150527
  Receipt Date: 20150527
  Transmission Date: 20150821
  Serious: Yes (Other)
  Sender: FDA-Public Use
  Company Number: US-CIPLA LTD.-2015US03985

PATIENT

DRUGS (2)
  1. GEMCITABINE [Suspect]
     Active Substance: GEMCITABINE\GEMCITABINE HYDROCHLORIDE
     Indication: CHOLANGIOCARCINOMA
     Dosage: 1000 MG/M2, ON DAYS 1 AND 8
     Route: 042
  2. CAPEGARD [Suspect]
     Active Substance: CAPECITABINE
     Indication: CHOLANGIOCARCINOMA
     Dosage: 1500 MG/M2, BID,  ON DAYS 1 TO 14 IN DIVIDED DOSES TWICE DAILY
     Route: 065

REACTIONS (1)
  - Neoplasm recurrence [Unknown]
